FAERS Safety Report 13090594 (Version 1)
Quarter: 2017Q1

REPORT INFORMATION
  Report Type: Report from Study
  Country: US (occurrence: US)
  Receive Date: 20170105
  Receipt Date: 20170105
  Transmission Date: 20170428
  Serious: Yes (Hospitalization, Other)
  Sender: FDA-Public Use
  Company Number: US-ELI_LILLY_AND_COMPANY-US201701000549

PATIENT
  Sex: Male
  Weight: 131.52 kg

DRUGS (2)
  1. ZYPREXA RELPREVV [Suspect]
     Active Substance: OLANZAPINE PAMOATE
     Indication: ANXIETY DISORDER
  2. ZYPREXA RELPREVV [Suspect]
     Active Substance: OLANZAPINE PAMOATE
     Indication: PERSONALITY DISORDER
     Dosage: 300 MG, 2/M
     Route: 030
     Dates: start: 20140605

REACTIONS (5)
  - Off label use [Unknown]
  - Dizziness [Unknown]
  - Lethargy [Unknown]
  - Asthenia [Unknown]
  - Muscle twitching [Unknown]

NARRATIVE: CASE EVENT DATE: 20161229
